FAERS Safety Report 20723327 (Version 3)
Quarter: 2022Q2

REPORT INFORMATION
  Report Type: Report from Study
  Country: CA (occurrence: CA)
  Receive Date: 20220419
  Receipt Date: 20220623
  Transmission Date: 20220721
  Serious: Yes (Hospitalization, Other)
  Sender: FDA-Public Use
  Company Number: CA-ABBVIE-21K-028-4067695-00

PATIENT
  Age: 67 Year
  Sex: Female

DRUGS (2)
  1. RINVOQ [Suspect]
     Active Substance: UPADACITINIB
     Indication: Rheumatoid arthritis
     Route: 048
     Dates: start: 20200206, end: 2020
  2. RINVOQ [Suspect]
     Active Substance: UPADACITINIB
     Route: 048
     Dates: start: 202003, end: 202202

REACTIONS (8)
  - Hip surgery [Unknown]
  - Infection [Unknown]
  - Arthropathy [Unknown]
  - Mobility decreased [Unknown]
  - Sensitivity to weather change [Unknown]
  - Unevaluable event [Unknown]
  - Fall [Unknown]
  - Rheumatoid arthritis [Unknown]

NARRATIVE: CASE EVENT DATE: 20220201
